FAERS Safety Report 7017464-X (Version None)
Quarter: 2010Q3

REPORT INFORMATION
  Report Type: 
  Country: None (occurrence: None)
  Receive Date: 20100928
  Receipt Date: 20100917
  Transmission Date: 20110219
  Serious: Yes (Death, Life-Threatening, Other)
  Sender: FDA-Public Use
  Company Number: JP-PFIZER INC-2010102224

PATIENT
  Age: 61 Year
  Sex: Male

DRUGS (1)
  1. SUTENT [Suspect]
     Indication: RENAL CELL CARCINOMA
     Dosage: 50 MG, DAILY
     Route: 048
     Dates: start: 20100701, end: 20100806

REACTIONS (4)
  - BLOOD PRESSURE INCREASED [None]
  - DISEASE PROGRESSION [None]
  - RENAL CELL CARCINOMA [None]
  - TUMOUR LYSIS SYNDROME [None]
